FAERS Safety Report 16574019 (Version 2)
Quarter: 2019Q3

REPORT INFORMATION
  Report Type: Spontaneous
  Country: FR (occurrence: FR)
  Receive Date: 20190715
  Receipt Date: 20190917
  Transmission Date: 20191004
  Serious: Yes (Death, Other)
  Sender: FDA-Public Use
  Company Number: FR-SHIRE-FR201921989

PATIENT

DRUGS (2)
  1. HYQVIA [Suspect]
     Active Substance: HUMAN IMMUNOGLOBULIN G\HYALURONIDASE RECOMBINANT HUMAN
     Dosage: 37.5 UNK
     Route: 058
     Dates: start: 20180710
  2. HYQVIA [Suspect]
     Active Substance: HUMAN IMMUNOGLOBULIN G\HYALURONIDASE RECOMBINANT HUMAN
     Indication: PRIMARY IMMUNODEFICIENCY SYNDROME
     Dosage: 30 GRAM
     Route: 058
     Dates: start: 20180730

REACTIONS (8)
  - Cholecystitis infective [Fatal]
  - Infusion site erythema [Recovered/Resolved]
  - Epistaxis [Unknown]
  - Skin atrophy [Unknown]
  - Infusion site pain [Unknown]
  - Septic shock [Fatal]
  - Infusion site swelling [Recovered/Resolved]
  - Infusion site extravasation [Unknown]
